FAERS Safety Report 4729265-3 (Version None)
Quarter: 2005Q3

REPORT INFORMATION
  Report Type: 
  Country: None (occurrence: None)
  Receive Date: 20050729
  Receipt Date: 20040823
  Transmission Date: 20060218
  Serious: No
  Sender: FDA-Public Use
  Company Number: US-GLAXOSMITHKLINE-A0523049A

PATIENT
  Age: 46 Year
  Sex: Female
  Weight: 66.4 kg

DRUGS (5)
  1. IMITREX [Suspect]
     Indication: MIGRAINE
     Dosage: 25MG AS REQUIRED
     Route: 048
     Dates: start: 20000101
  2. TYLENOL W/ CODEINE NO. 3 [Concomitant]
  3. VITAMINS [Concomitant]
  4. NEXIUM [Concomitant]
  5. XANAX [Concomitant]

REACTIONS (2)
  - FLUSHING [None]
  - OCULAR HYPERAEMIA [None]
